FAERS Safety Report 19858634 (Version 2)
Quarter: 2021Q4

REPORT INFORMATION
  Report Type: Spontaneous
  Country: US (occurrence: US)
  Receive Date: 20210921
  Receipt Date: 20211006
  Transmission Date: 20220303
  Serious: No
  Sender: FDA-Public Use
  Company Number: US-MERCK HEALTHCARE KGAA-9266741

PATIENT
  Age: 53 Year
  Sex: Female

DRUGS (1)
  1. MAVENCLAD [Suspect]
     Active Substance: CLADRIBINE
     Indication: Multiple sclerosis
     Dosage: YEAR ONE MONTH ONE THERAPY
     Route: 048
     Dates: start: 202108

REACTIONS (5)
  - Nausea [Unknown]
  - Muscle spasms [Unknown]
  - Vomiting [Unknown]
  - Headache [Unknown]
  - Decreased appetite [Unknown]

NARRATIVE: CASE EVENT DATE: 20210801
